FAERS Safety Report 4424740-3 (Version None)
Quarter: 2004Q3

REPORT INFORMATION
  Report Type: 
  Country: None (occurrence: None)
  Receive Date: 20040719
  Receipt Date: 20040126
  Transmission Date: 20050211
  Serious: Yes (Hospitalization)
  Sender: FDA-Public Use
  Company Number: 191321

PATIENT
  Age: 47 Year
  Sex: Female
  Weight: 86.1834 kg

DRUGS (11)
  1. AVONEX [Suspect]
     Indication: MULTIPLE SCLEROSIS
     Dosage: 30 MCG QW IM
     Route: 030
     Dates: start: 20020101
  2. XANAX [Concomitant]
  3. AMITRIPTYLINE HCL [Concomitant]
  4. NORVASC [Concomitant]
  5. GLUCOPHAGE [Concomitant]
  6. ADVAIR DISKUS 100/50 [Concomitant]
  7. AZMACORT [Concomitant]
  8. ALBUTEROL [Concomitant]
  9. NAPROXEN [Concomitant]
  10. PROVENTIL [Concomitant]
  11. NASAL SPRAY [Concomitant]

REACTIONS (11)
  - CONVULSION [None]
  - EXCORIATION [None]
  - FALL [None]
  - HEADACHE [None]
  - HYPERHIDROSIS [None]
  - KELOID SCAR [None]
  - LOWER LIMB FRACTURE [None]
  - MUSCLE SPASMS [None]
  - OEDEMA PERIPHERAL [None]
  - PAIN IN EXTREMITY [None]
  - STRESS SYMPTOMS [None]
